FAERS Safety Report 8453176-3 (Version None)
Quarter: 2012Q2

REPORT INFORMATION
  Report Type: 
  Country: None (occurrence: None)
  Receive Date: 20120620
  Receipt Date: 20120510
  Transmission Date: 20120825
  Serious: No
  Sender: FDA-Public Use
  Company Number: US-VERTEX PHARMACEUTICALS INC.-AE-2012-006854

PATIENT
  Sex: Female
  Weight: 74.456 kg

DRUGS (6)
  1. INCIVEK [Suspect]
     Indication: HEPATITIS C
     Route: 048
     Dates: start: 20120412
  2. PROZAC [Concomitant]
     Route: 048
  3. COPEGUS [Concomitant]
     Indication: HEPATITIS C
     Route: 048
     Dates: start: 20120412
  4. PEGASYS [Concomitant]
     Indication: HEPATITIS C
     Route: 058
     Dates: start: 20120412
  5. VITAMIN D [Concomitant]
     Indication: MEDICAL DIET
     Route: 048
  6. TRIAMCINOLONE ACETATE CREAM [Concomitant]
     Indication: DRY SKIN
     Route: 061

REACTIONS (10)
  - WHITE BLOOD CELL COUNT DECREASED [None]
  - HAEMOGLOBIN DECREASED [None]
  - FATIGUE [None]
  - ANAL PRURITUS [None]
  - DRUG DOSE OMISSION [None]
  - DYSPNOEA [None]
  - HEADACHE [None]
  - DIZZINESS [None]
  - HAEMATOCRIT DECREASED [None]
  - PRURITUS [None]
